FAERS Safety Report 7421257-9 (Version None)
Quarter: 2011Q2

REPORT INFORMATION
  Report Type: 
  Country: None (occurrence: None)
  Receive Date: 20110418
  Receipt Date: 20110408
  Transmission Date: 20111010
  Serious: Yes (Other)
  Sender: FDA-Public Use
  Company Number: US-AMGEN-USASP2011018703

PATIENT
  Sex: Female

DRUGS (6)
  1. THYROID THERAPY [Concomitant]
  2. LIPITOR [Concomitant]
  3. PROLIA [Suspect]
     Indication: OSTEOPOROSIS POSTMENOPAUSAL
     Dates: start: 20110201
  4. ASPIRIN [Concomitant]
  5. TOPROL-XL [Concomitant]
  6. COZAAR [Concomitant]

REACTIONS (5)
  - STRESS [None]
  - FEELING ABNORMAL [None]
  - INSOMNIA [None]
  - BACK PAIN [None]
  - RASH [None]
